FAERS Safety Report 13029026 (Version 1)
Quarter: 2016Q4

REPORT INFORMATION
  Report Type: Spontaneous
  Country: US (occurrence: US)
  Receive Date: 20161214
  Receipt Date: 20161214
  Transmission Date: 20170207
  Serious: No
  Sender: FDA-Public Use
  Company Number: US-BAUSCH-BL-2016-024821

PATIENT
  Sex: Male

DRUGS (1)
  1. FLUOROURACIL CREAM 0.5% [Suspect]
     Active Substance: FLUOROURACIL
     Indication: PRODUCT USED FOR UNKNOWN INDICATION
     Route: 061

REACTIONS (2)
  - Pain of skin [Not Recovered/Not Resolved]
  - Application site erythema [Not Recovered/Not Resolved]
